FAERS Safety Report 11861480 (Version 1)
Quarter: 2015Q4

REPORT INFORMATION
  Report Type: Spontaneous
  Country: FR (occurrence: FR)
  Receive Date: 20151222
  Receipt Date: 20151222
  Transmission Date: 20160305
  Serious: Yes (Hospitalization, Other)
  Sender: FDA-Public Use
  Company Number: FR-MEDTRONIC-1045797

PATIENT
  Age: 51 Year
  Sex: Male

DRUGS (8)
  1. FOSAMAX [Concomitant]
     Active Substance: ALENDRONATE SODIUM
  2. KEPPRA [Concomitant]
     Active Substance: LEVETIRACETAM
  3. DEDROGYL (CALCIFEDIOL) [Concomitant]
  4. DIAMICRON (GLICLAZIDE) [Concomitant]
     Active Substance: GLICLAZIDE
  5. BROMAZEPAM [Concomitant]
     Active Substance: BROMAZEPAM
  6. DEPAKENE [Concomitant]
     Active Substance: VALPROIC ACID
  7. VALIUM [Concomitant]
     Active Substance: DIAZEPAM
  8. LIORESAL [Suspect]
     Active Substance: BACLOFEN
     Indication: ALCOHOLISM
     Dates: start: 201212

REACTIONS (16)
  - Ataxia [Unknown]
  - Gait disturbance [Unknown]
  - Diabetic neuropathy [Unknown]
  - Nausea [Unknown]
  - Pancreatitis chronic [Unknown]
  - Electromyogram abnormal [Unknown]
  - Dizziness [Unknown]
  - Decreased vibratory sense [Unknown]
  - Hypoaesthesia [Unknown]
  - Condition aggravated [Unknown]
  - Computerised tomogram abnormal [Unknown]
  - Neuropathy peripheral [Unknown]
  - Peripheral sensorimotor neuropathy [Unknown]
  - Paraesthesia [None]
  - Balance disorder [Unknown]
  - Hyporeflexia [Unknown]

NARRATIVE: CASE EVENT DATE: 20141025
